FAERS Safety Report 4876821-8 (Version None)
Quarter: 2005Q4

REPORT INFORMATION
  Report Type: 
  Country: None (occurrence: None)
  Receive Date: 20051206
  Receipt Date: 20050802
  Transmission Date: 20060501
  Serious: No
  Sender: FDA-Public Use
  Company Number: USA0508104418

PATIENT
  Age: 54 Year
  Sex: Male
  Weight: 92 kg

DRUGS (5)
  1. CYMBALTA [Suspect]
     Indication: NEURALGIA
     Dosage: 60 MG/1 DAY
     Dates: start: 20050725, end: 20050728
  2. GLUCOTROL [Concomitant]
  3. ENALAPRIL [Concomitant]
  4. ADIMET (METFORMIN HYDROCHLORIDE) [Concomitant]
  5. LIPITOR [Concomitant]

REACTIONS (4)
  - HYPERHIDROSIS [None]
  - INFLUENZA LIKE ILLNESS [None]
  - MALAISE [None]
  - VOMITING [None]
